FAERS Safety Report 17444986 (Version 1)
Quarter: 2020Q1

REPORT INFORMATION
  Report Type: Spontaneous
  Country: DE (occurrence: DE)
  Receive Date: 20200221
  Receipt Date: 20200221
  Transmission Date: 20200409
  Serious: Yes (Hospitalization)
  Sender: FDA-Public Use
  Company Number: DE-TEVA-2020-DE-1189100

PATIENT
  Age: 81 Year
  Sex: Male

DRUGS (9)
  1. COLECALCIFEROL (VITAMIN D) [Concomitant]
     Dosage: 1000 IE, 1-0-0-0, TABLETTEN
     Route: 048
  2. DICLOFENAC [Suspect]
     Active Substance: DICLOFENAC
     Dosage: 69.82 MG, BEI BEDARF, RETARD-KAPSELN
     Route: 048
  3. PANKREATIN (SCHWEIN) [Concomitant]
     Dosage: 1600 MILLIGRAM DAILY; 400 MG, 1-1-2-0, CAPSULES
     Route: 048
  4. CLOPIDOGREL [Suspect]
     Active Substance: CLOPIDOGREL BISULFATE
     Dosage: 75 MG, 0-1-0-0, TABLETTEN
     Route: 048
  5. PANTOPRAZOL [Concomitant]
     Active Substance: PANTOPRAZOLE SODIUM
     Dosage: 40 MILLIGRAM DAILY; 40 MG/2DAYS, 1-0-0-0, TABLETS
     Route: 048
  6. PREDNISOLONE. [Suspect]
     Active Substance: PREDNISOLONE
     Dosage: 5 MILLIGRAM DAILY; 5 MG, 1-0-0-0, TABLETTEN
     Route: 048
  7. FOLSAURE [Concomitant]
     Active Substance: FOLIC ACID
     Dosage: 5 MILLIGRAM DAILY; 5 MG/1 WTL., 1-0-0-0
  8. METHOTREXATE. [Suspect]
     Active Substance: METHOTREXATE
     Dosage: 15 MILLIGRAM DAILY; 15 MG/1 WTL., 1-0-0-0
  9. METAMIZOL [Concomitant]
     Active Substance: METAMIZOLE SODIUM
     Dosage: 30 GTT, IF NECESSARY

REACTIONS (4)
  - Pallor [Unknown]
  - Arthralgia [Unknown]
  - General physical health deterioration [Unknown]
  - Anaemia [Unknown]
